FAERS Safety Report 5168404-X (Version None)
Quarter: 2006Q4

REPORT INFORMATION
  Report Type: 
  Country: None (occurrence: None)
  Receive Date: 20061208
  Receipt Date: 20061128
  Transmission Date: 20070319
  Serious: Yes (Hospitalization)
  Sender: FDA-Public Use
  Company Number: US-ROCHE-473219

PATIENT
  Age: 66 Year
  Sex: Female
  Weight: 59.4 kg

DRUGS (3)
  1. BONIVA [Suspect]
     Indication: OSTEOPOROSIS
     Route: 048
     Dates: start: 20060415
  2. VYTORIN [Concomitant]
     Route: 048
  3. ASPIRIN [Concomitant]
     Dosage: REPORTED AS BABY ASPIRIN TAKEN DAILY.
     Route: 048

REACTIONS (2)
  - FALL [None]
  - PATELLA FRACTURE [None]
